FAERS Safety Report 9267417 (Version 1)
Quarter: 2013Q2

REPORT INFORMATION
  Report Type: Spontaneous
  Country: JP (occurrence: JP)
  Receive Date: 20130502
  Receipt Date: 20130502
  Transmission Date: 20140414
  Serious: Yes (Other)
  Sender: FDA-Public Use
  Company Number: JP-PFIZER INC-2013130801

PATIENT
  Age: 50 Year
  Sex: Female

DRUGS (3)
  1. HYDROCORTISONE [Suspect]
     Indication: HYPOPITUITARISM
  2. EXENATIDE [Suspect]
     Indication: DIABETES MELLITUS
     Dosage: 5 UG, 2X/DAY
  3. EXENATIDE [Suspect]
     Dosage: 10 UG, 2X/DAY

REACTIONS (1)
  - Adrenal insufficiency [Recovered/Resolved]
